FAERS Safety Report 4472120-7 (Version None)
Quarter: 2004Q4

REPORT INFORMATION
  Report Type: 
  Country: None (occurrence: None)
  Receive Date: 20041008
  Receipt Date: 20040927
  Transmission Date: 20050328
  Serious: Yes (Life-Threatening, Hospitalization, Other)
  Sender: FDA-Public Use
  Company Number: 2004044451

PATIENT
  Age: 55 Year
  Sex: Male
  Weight: 79.3795 kg

DRUGS (3)
  1. DILANTIN [Suspect]
     Indication: CONVULSION
     Dates: start: 19800101
  2. ASPIRIN [Concomitant]
  3. VITAMINS (VITAMINS) [Concomitant]

REACTIONS (7)
  - ABASIA [None]
  - BRAIN NEOPLASM [None]
  - CONVULSION [None]
  - DYSSTASIA [None]
  - NEOPLASM RECURRENCE [None]
  - NEUROPATHY PERIPHERAL [None]
  - TREMOR [None]
